FAERS Safety Report 13305751 (Version 2)
Quarter: 2017Q1

REPORT INFORMATION
  Report Type: Report from Study
  Country: IT (occurrence: IT)
  Receive Date: 20170308
  Receipt Date: 20170314
  Transmission Date: 20170428
  Serious: Yes (Other)
  Sender: FDA-Public Use
  Company Number: IT-TEVA-745731ACC

PATIENT
  Age: 75 Year
  Sex: Male

DRUGS (1)
  1. ATENOLOL. [Suspect]
     Active Substance: ATENOLOL
     Indication: ARRHYTHMIA
     Route: 048

REACTIONS (3)
  - Asthenia [Unknown]
  - Vertigo [Unknown]
  - Bradycardia [Unknown]

NARRATIVE: CASE EVENT DATE: 20160922
